FAERS Safety Report 4341164-8 (Version None)
Quarter: 2004Q2

REPORT INFORMATION
  Report Type: 
  Country: None (occurrence: None)
  Receive Date: 20040419
  Receipt Date: 20040407
  Transmission Date: 20050107
  Serious: Yes (Other)
  Sender: FDA-Public Use
  Company Number: IE-GLAXOSMITHKLINE-B0329472A

PATIENT
  Age: 33 Year
  Sex: Female

DRUGS (2)
  1. AUGMENTIN [Suspect]
     Indication: TONSILLITIS
     Dosage: 625MG TWICE PER DAY
     Route: 048
     Dates: start: 20040329, end: 20040403
  2. NORETHINDRONE ACETATE AND ETHINYL ESTRADIOL [Concomitant]
     Route: 048

REACTIONS (2)
  - CONVULSION [None]
  - LOSS OF CONSCIOUSNESS [None]
